FAERS Safety Report 4287823-7 (Version None)
Quarter: 2004Q1

REPORT INFORMATION
  Report Type: 
  Country: None (occurrence: None)
  Receive Date: 20040209
  Receipt Date: 20031003
  Transmission Date: 20041129
  Serious: No
  Sender: FDA-Public Use
  Company Number: US-GLAXOSMITHKLINE-A0428711A

PATIENT
  Age: 48 Year
  Sex: Male

DRUGS (2)
  1. PAXIL [Suspect]
     Dosage: 12.5MG PER DAY
     Route: 048
     Dates: start: 20030901
  2. ADDERALL 10 [Concomitant]

REACTIONS (1)
  - PROSTATITIS [None]
